FAERS Safety Report 15644813 (Version 2)
Quarter: 2019Q1

REPORT INFORMATION
  Report Type: Spontaneous
  Country: IL (occurrence: IL)
  Receive Date: 20181121
  Receipt Date: 20190130
  Transmission Date: 20190417
  Serious: Yes (Other)
  Sender: FDA-Public Use
  Company Number: IL-EISAI MEDICAL RESEARCH-EC-2018-047962

PATIENT
  Age: 57 Year
  Sex: Female

DRUGS (5)
  1. BELVIQ [Suspect]
     Active Substance: LORCASERIN HYDROCHLORIDE
     Indication: WEIGHT DECREASED
     Route: 048
     Dates: start: 2018, end: 2018
  2. BONDORMIN [Suspect]
     Active Substance: BROTIZOLAM
     Indication: PRODUCT USED FOR UNKNOWN INDICATION
     Dosage: UNKNOWN
     Route: 065
  3. STATOR [Concomitant]
     Indication: BLOOD CHOLESTEROL INCREASED
  4. GLUCOMIN [Concomitant]
     Active Substance: METFORMIN HYDROCHLORIDE
     Indication: GLUCOSE TOLERANCE IMPAIRED
     Dosage: UNKNOWN
  5. BONDORMIN [Suspect]
     Active Substance: BROTIZOLAM
     Dosage: 20 UNITS (TOTAL DOSE UNSPECIFIED)
     Route: 065

REACTIONS (7)
  - Disturbance in attention [Recovered/Resolved]
  - Suicide attempt [Unknown]
  - Confusional state [Recovered/Resolved]
  - Memory impairment [Recovered/Resolved]
  - Aphasia [Recovered/Resolved]
  - Cognitive disorder [Recovered/Resolved]
  - Depression [Recovered/Resolved]

NARRATIVE: CASE EVENT DATE: 2018
